FAERS Safety Report 4928919-3 (Version None)
Quarter: 2006Q1

REPORT INFORMATION
  Report Type: 
  Country: None (occurrence: None)
  Receive Date: 20060228
  Receipt Date: 20060228
  Transmission Date: 20060701
  Serious: Yes (Hospitalization)
  Sender: FDA-Public Use
  Company Number: None

PATIENT
  Age: 63 Year
  Sex: Female
  Weight: 93.441 kg

DRUGS (1)
  1. KETEK [Suspect]
     Indication: BRONCHITIS ACUTE
     Dosage: 400MG  2 DAILY  PO
     Route: 048
     Dates: start: 20051128, end: 20051202

REACTIONS (7)
  - BLOOD CREATININE INCREASED [None]
  - BLOOD UREA INCREASED [None]
  - EOSINOPHILIA [None]
  - LUNG INFILTRATION [None]
  - NEPHRITIS INTERSTITIAL [None]
  - RASH [None]
  - RENAL IMPAIRMENT [None]
